FAERS Safety Report 9114427 (Version 1)
Quarter: 2013Q1

REPORT INFORMATION
  Report Type: Spontaneous
  Country: FR (occurrence: FR)
  Receive Date: 20130208
  Receipt Date: 20130208
  Transmission Date: 20140127
  Serious: Yes (Hospitalization)
  Sender: FDA-Public Use
  Company Number: FR-SANOFI-AVENTIS-2013SA010410

PATIENT
  Age: 80 Year
  Sex: Female

DRUGS (11)
  1. FUROSEMIDE [Suspect]
     Indication: PRODUCT USED FOR UNKNOWN INDICATION
     Route: 048
     Dates: end: 20121106
  2. VALSARTAN [Suspect]
     Indication: PRODUCT USED FOR UNKNOWN INDICATION
     Route: 048
     Dates: end: 20121106
  3. EUPRESSYL [Suspect]
     Indication: PRODUCT USED FOR UNKNOWN INDICATION
     Route: 048
     Dates: end: 20121106
  4. ATENOLOL [Suspect]
     Indication: PRODUCT USED FOR UNKNOWN INDICATION
     Route: 048
     Dates: end: 20121106
  5. AMLODIPINE [Suspect]
     Indication: PRODUCT USED FOR UNKNOWN INDICATION
     Route: 048
     Dates: end: 20121106
  6. DIFFU K [Suspect]
     Indication: PRODUCT USED FOR UNKNOWN INDICATION
     Route: 048
     Dates: end: 20121106
  7. INSULIN DETEMIR [Concomitant]
     Route: 058
     Dates: end: 20121106
  8. PREVISCAN [Concomitant]
     Indication: INTERNATIONAL NORMALISED RATIO
     Route: 048
     Dates: end: 20121106
  9. PANTOPRAZOLE ZENTIVA [Concomitant]
     Route: 048
     Dates: end: 20121106
  10. INEGY [Concomitant]
     Route: 048
     Dates: end: 20121106
  11. VICTOZA [Concomitant]
     Route: 058
     Dates: end: 20121106

REACTIONS (1)
  - Cardiogenic shock [Recovered/Resolved]
